FAERS Safety Report 9123766 (Version 1)
Quarter: 2013Q1

REPORT INFORMATION
  Report Type: Spontaneous
  Country: US (occurrence: US)
  Receive Date: 20130227
  Receipt Date: 20130227
  Transmission Date: 20140127
  Serious: No
  Sender: FDA-Public Use
  Company Number: US-ASTRAZENECA-2013SE10996

PATIENT
  Age: 63 Year
  Sex: Female
  Weight: 99.8 kg

DRUGS (9)
  1. NEXIUM [Suspect]
     Indication: GASTROOESOPHAGEAL REFLUX DISEASE
     Dosage: GENERIC
     Route: 048
  2. NEXIUM [Suspect]
     Indication: GASTROOESOPHAGEAL REFLUX DISEASE
     Route: 048
  3. LISINOPRIL [Suspect]
     Route: 048
  4. METOPROLOL [Suspect]
     Route: 048
  5. OMEPRAZOLE [Suspect]
     Route: 048
  6. CRESTOR [Suspect]
     Indication: BLOOD CHOLESTEROL INCREASED
     Dosage: DOSE UNKNOWN, DAILY
     Route: 048
  7. ASA [Concomitant]
  8. FUROSEMIDE [Concomitant]
  9. RANITIDINE [Concomitant]

REACTIONS (2)
  - Gait disturbance [Unknown]
  - Pain in extremity [Unknown]
